FAERS Safety Report 9350167 (Version 2)
Quarter: 2013Q4

REPORT INFORMATION
  Report Type: Spontaneous
  Country: BR (occurrence: BR)
  Receive Date: 20130617
  Receipt Date: 20131230
  Transmission Date: 20140711
  Serious: Yes (Hospitalization, Congenital Anomaly)
  Sender: FDA-Public Use
  Company Number: BR-ROCHE-1235450

PATIENT
  Sex: 0
  Weight: 2.5 kg

DRUGS (1)
  1. RIVOTRIL [Suspect]
     Indication: PRODUCT USED FOR UNKNOWN INDICATION
     Route: 064

REACTIONS (5)
  - Pertussis [Recovered/Resolved]
  - Lactose intolerance [Recovered/Resolved]
  - Rhinitis [Recovered/Resolved]
  - Sinusitis [Recovered/Resolved]
  - Maternal exposure timing unspecified [Unknown]
